FAERS Safety Report 5639742-9 (Version None)
Quarter: 2008Q1

REPORT INFORMATION
  Report Type: 
  Country: None (occurrence: None)
  Receive Date: 20080222
  Receipt Date: 20080215
  Transmission Date: 20080703
  Serious: Yes (Other)
  Sender: FDA-Public Use
  Company Number: 023949

PATIENT
  Sex: Female
  Weight: 59 kg

DRUGS (4)
  1. WARFARIN SODIUM [Suspect]
     Indication: BLOOD DISORDER
     Dosage: 17 MG, WEEKLY, ORAL
     Route: 048
     Dates: start: 20000101
  2. ASPIRIN [Concomitant]
  3. ATENOLOL [Concomitant]
  4. HYZAAR [Concomitant]

REACTIONS (1)
  - TRANSIENT ISCHAEMIC ATTACK [None]
